FAERS Safety Report 8551352-2 (Version None)
Quarter: 2012Q3

REPORT INFORMATION
  Report Type: 
  Country: None (occurrence: None)
  Receive Date: 20120723
  Receipt Date: 20120723
  Transmission Date: 20120928
  Serious: Yes (Other)
  Sender: FDA-Public Use
  Company Number: None

PATIENT
  Sex: Female

DRUGS (1)
  1. SYNTHROID [Suspect]
     Indication: HYPOTHYROIDISM
     Dosage: 0.5MG ONCE A DAY PO
     Route: 048

REACTIONS (4)
  - ASTHMA [None]
  - PRURITUS [None]
  - CHEST DISCOMFORT [None]
  - OEDEMA [None]
